FAERS Safety Report 8535612-7 (Version None)
Quarter: 2012Q3

REPORT INFORMATION
  Report Type: 
  Country: None (occurrence: None)
  Receive Date: 20120725
  Receipt Date: 20120716
  Transmission Date: 20120928
  Serious: Yes (Hospitalization)
  Sender: FDA-Public Use
  Company Number: US-BAYER-2012-072356

PATIENT
  Age: 53 Year
  Sex: Female
  Weight: 96.599 kg

DRUGS (5)
  1. YAZ [Suspect]
     Indication: MENORRHAGIA
  2. PRILOSEC [Concomitant]
  3. YASMIN [Suspect]
     Dosage: UNK
  4. CALCIUM [Concomitant]
  5. PROZAC [Concomitant]
     Dosage: 40 MG, QD

REACTIONS (1)
  - PULMONARY EMBOLISM [None]
